FAERS Safety Report 8945428 (Version 1)
Quarter: 2012Q4

REPORT INFORMATION
  Report Type: 
  Country: PL (occurrence: PL)
  Receive Date: 20121205
  Receipt Date: 20121205
  Transmission Date: 20130627
  Serious: Yes (Hospitalization)
  Sender: FDA-Public Use
  Company Number: PHHY2012PL110261

PATIENT
  Sex: Female

DRUGS (5)
  1. NEORAL [Suspect]
     Indication: RENAL TRANSPLANT
     Dosage: UNK
     Dates: end: 201201
  2. NEORAL [Suspect]
     Indication: IMMUNOSUPPRESSION
  3. AZATHIOPRINE [Suspect]
     Indication: IMMUNOSUPPRESSION
  4. PREDNISONE [Suspect]
     Indication: IMMUNOSUPPRESSION
  5. METOCARD [Concomitant]

REACTIONS (12)
  - Post transplant lymphoproliferative disorder [Unknown]
  - Renal cancer recurrent [Unknown]
  - Renal mass [Unknown]
  - Renal abscess [Unknown]
  - Glomerulosclerosis [Unknown]
  - Kidney fibrosis [Unknown]
  - Renal injury [Unknown]
  - Local swelling [Unknown]
  - Urinary tract infection bacterial [Unknown]
  - Leukocytosis [Unknown]
  - Pyuria [Unknown]
  - Blood triglycerides increased [Unknown]
